FAERS Safety Report 8090333-2 (Version None)
Quarter: 2012Q1

REPORT INFORMATION
  Report Type: 
  Country: None (occurrence: None)
  Receive Date: 20120129
  Receipt Date: 20111118
  Transmission Date: 20120608
  Serious: No
  Sender: FDA-Public Use
  Company Number: US-ABBOTT-11P-163-0875956-00

PATIENT
  Age: 44 Year
  Sex: Female

DRUGS (4)
  1. BYSTOLIC [Concomitant]
     Indication: HYPERTENSION
  2. PREMARIN [Concomitant]
     Indication: HORMONE THERAPY
  3. LUNESTA [Concomitant]
     Indication: PRODUCT USED FOR UNKNOWN INDICATION
     Dosage: AT BEDTIME
  4. HUMIRA [Suspect]
     Indication: RHEUMATOID ARTHRITIS
     Dates: start: 20110701

REACTIONS (5)
  - UPPER-AIRWAY COUGH SYNDROME [None]
  - SNEEZING [None]
  - FATIGUE [None]
  - NASOPHARYNGITIS [None]
  - NASAL CONGESTION [None]
